FAERS Safety Report 18323022 (Version 11)
Quarter: 2021Q4

REPORT INFORMATION
  Report Type: Spontaneous
  Country: US (occurrence: US)
  Receive Date: 20200929
  Receipt Date: 20211110
  Transmission Date: 20220303
  Serious: No
  Sender: FDA-Public Use
  Company Number: US-DSJP-DSU-2020-127930

PATIENT
  Sex: Female

DRUGS (4)
  1. TURALIO [Suspect]
     Active Substance: PEXIDARTINIB HYDROCHLORIDE
     Indication: Synovitis
     Dosage: 200 MG, BID
     Route: 048
     Dates: start: 20200917
  2. TURALIO [Suspect]
     Active Substance: PEXIDARTINIB HYDROCHLORIDE
     Dosage: 200 MG QAM, 400 MG QPM
     Route: 048
  3. TURALIO [Suspect]
     Active Substance: PEXIDARTINIB HYDROCHLORIDE
     Dosage: 200 MG, QAM, TWICE A DAY
     Route: 048
  4. TURALIO [Suspect]
     Active Substance: PEXIDARTINIB HYDROCHLORIDE
     Dosage: UNK

REACTIONS (15)
  - Pain [Recovering/Resolving]
  - Tumour inflammation [Recovered/Resolved]
  - Taste disorder [Unknown]
  - Constipation [Unknown]
  - Abdominal distension [Unknown]
  - Discomfort [Unknown]
  - Alopecia [Unknown]
  - Feeling abnormal [Unknown]
  - Periorbital swelling [Unknown]
  - Bowel movement irregularity [Unknown]
  - Diarrhoea [Unknown]
  - Cognitive disorder [Unknown]
  - Fluid retention [Recovered/Resolved]
  - Product dose omission issue [Unknown]
  - Acne [Unknown]

NARRATIVE: CASE EVENT DATE: 20200101
